FAERS Safety Report 6145675-4 (Version None)
Quarter: 2009Q2

REPORT INFORMATION
  Report Type: 
  Country: None (occurrence: None)
  Receive Date: 20090407
  Receipt Date: 20090401
  Transmission Date: 20091009
  Serious: Yes (Hospitalization)
  Sender: FDA-Public Use
  Company Number: DE-BRISTOL-MYERS SQUIBB COMPANY-14517726

PATIENT
  Age: 45 Year
  Sex: Male
  Weight: 63 kg

DRUGS (3)
  1. VEPESID-K-50 [Suspect]
     Indication: TESTICULAR NEOPLASM
     Dosage: 2ND CYCLE= 25FEB09-11MAR09
     Route: 048
     Dates: start: 20090121, end: 20090210
  2. ACTIQ [Concomitant]
     Dosage: STICKS
     Route: 048
  3. DURAGESIC-100 [Concomitant]
     Dosage: PATCH

REACTIONS (3)
  - ANAEMIA [None]
  - LEUKOPENIA [None]
  - THROMBOCYTOPENIA [None]
